FAERS Safety Report 5416644-4 (Version None)
Quarter: 2007Q3

REPORT INFORMATION
  Report Type: 
  Country: None (occurrence: None)
  Receive Date: 20070814
  Receipt Date: 20070730
  Transmission Date: 20080115
  Serious: Yes (Other)
  Sender: FDA-Public Use
  Company Number: 2007BM000097

PATIENT
  Age: 8 Month
  Sex: Female

DRUGS (2)
  1. PREDNISOLONE [Suspect]
     Dosage: 70 MG; ;QW
  2. ORAPRED             (PREDNISOLONE SODIUM PHOSPHATE)(EXCEPT SYRUP) [Suspect]

REACTIONS (1)
  - PNEUMOCYSTIS JIROVECI PNEUMONIA [None]
